FAERS Safety Report 12758723 (Version 2)
Quarter: 2016Q3

REPORT INFORMATION
  Report Type: Spontaneous
  Country: GB (occurrence: GB)
  Receive Date: 20160919
  Receipt Date: 20160928
  Transmission Date: 20161109
  Serious: Yes (Life-Threatening, Hospitalization)
  Sender: FDA-Public Use
  Company Number: GB-PFIZER INC-2016431289

PATIENT
  Age: 33 Year
  Sex: Male
  Weight: 53.9 kg

DRUGS (7)
  1. QUETIAPINE. [Suspect]
     Active Substance: QUETIAPINE
     Dosage: 175 MG, 1X/DAY AT NIGHT
     Route: 048
     Dates: start: 20160401, end: 20160403
  2. QUETIAPINE. [Suspect]
     Active Substance: QUETIAPINE
     Dosage: 250 MG, 1X/DAY AT NIGHT
     Route: 048
     Dates: start: 20160410, end: 20160412
  3. QUETIAPINE. [Suspect]
     Active Substance: QUETIAPINE
     Indication: SCHIZOAFFECTIVE DISORDER
     Dosage: 150 MG, 1X/DAY AT NIGHT
     Route: 048
     Dates: start: 20160329, end: 20160331
  4. QUETIAPINE. [Suspect]
     Active Substance: QUETIAPINE
     Dosage: 275 MG, 1X/DAY AT NIGHT
     Route: 048
     Dates: start: 20160413, end: 20160622
  5. SERTRALINE HCL [Suspect]
     Active Substance: SERTRALINE HYDROCHLORIDE
     Dosage: UNK
  6. QUETIAPINE. [Suspect]
     Active Substance: QUETIAPINE
     Dosage: 225 MG, 1X/DAY AT NIGHT
     Route: 048
     Dates: start: 20160407, end: 20160409
  7. QUETIAPINE. [Suspect]
     Active Substance: QUETIAPINE
     Dosage: 200 MG, 1X/DAY AT NIGHT
     Route: 048
     Dates: start: 20160404, end: 20160406

REACTIONS (5)
  - Tremor [Recovered/Resolved]
  - Amnesia [Not Recovered/Not Resolved]
  - Neuroleptic malignant syndrome [Recovered/Resolved with Sequelae]
  - Respiratory arrest [Recovered/Resolved]
  - Confusional state [Recovered/Resolved]

NARRATIVE: CASE EVENT DATE: 2016
